FAERS Safety Report 4328290-4 (Version None)
Quarter: 2004Q1

REPORT INFORMATION
  Report Type: 
  Country: None (occurrence: None)
  Receive Date: 20040319
  Receipt Date: 20040123
  Transmission Date: 20041129
  Serious: No
  Sender: FDA-Public Use
  Company Number: US-JNJFOC-20040105229

PATIENT
  Age: 25 Year
  Sex: Female
  Weight: 65.7716 kg

DRUGS (2)
  1. ORTHO EVRA [Suspect]
     Indication: CONTRACEPTION
     Dosage: SEE IMAGE
     Route: 062
     Dates: start: 20020101
  2. ORTHO EVRA [Suspect]
     Indication: CONTRACEPTION
     Dosage: SEE IMAGE
     Route: 062
     Dates: start: 20030801

REACTIONS (1)
  - ALOPECIA [None]
